FAERS Safety Report 7628231-8 (Version None)
Quarter: 2011Q3

REPORT INFORMATION
  Report Type: 
  Country: None (occurrence: None)
  Receive Date: 20110720
  Receipt Date: 20110720
  Transmission Date: 20111222
  Serious: Yes (Life-Threatening)
  Sender: FDA-Public Use
  Company Number: None

PATIENT
  Sex: Male
  Weight: 58.9676 kg

DRUGS (1)
  1. TOPIRAMATE [Suspect]
     Indication: CONVULSION
     Dosage: 50MG ONE PO BID {2000
     Route: 048

REACTIONS (2)
  - CONVULSION [None]
  - PRODUCT SUBSTITUTION ISSUE [None]
